FAERS Safety Report 8092369-4 (Version None)
Quarter: 2012Q1

REPORT INFORMATION
  Report Type: 
  Country: None (occurrence: None)
  Receive Date: 20120130
  Receipt Date: 20120130
  Transmission Date: 20120608
  Serious: No
  Sender: FDA-Public Use
  Company Number: None

PATIENT
  Sex: Female
  Weight: 65.5 kg

DRUGS (3)
  1. BEVACIZUMAB (RHUMAB VEGF) [Suspect]
     Dosage: 1002 MG
     Dates: end: 20120113
  2. TAXOL [Suspect]
     Dosage: 340 MG
     Dates: end: 20120113
  3. CARBOPLATIN [Suspect]
     Dosage: 582 MG
     Dates: end: 20120113

REACTIONS (3)
  - NEUTROPHIL COUNT DECREASED [None]
  - HAEMOPTYSIS [None]
  - BRONCHITIS [None]
